FAERS Safety Report 9356265 (Version 1)
Quarter: 2013Q2

REPORT INFORMATION
  Report Type: Spontaneous
  Country: GB (occurrence: None)
  Receive Date: 20130614
  Receipt Date: 20130614
  Transmission Date: 20140414
  Serious: Yes (Other)
  Sender: FDA-Public Use
  Company Number: 2013GB0219

PATIENT
  Age: 74 Year
  Sex: Female

DRUGS (2)
  1. ANAKINRA [Suspect]
     Indication: RHEUMATOID ARTHRITIS
     Route: 058
     Dates: start: 20021215, end: 20030515
  2. AZATHIOPRINE (AZATHIOPRINCE)(AZ-UNK ATHIOPRINE) [Concomitant]

REACTIONS (1)
  - Anal squamous cell carcinoma [None]
